FAERS Safety Report 16250426 (Version 1)
Quarter: 2019Q2

REPORT INFORMATION
  Report Type: Report from Study
  Country: US (occurrence: US)
  Receive Date: 20190429
  Receipt Date: 20190429
  Transmission Date: 20190711
  Serious: Yes (Hospitalization)
  Sender: FDA-Public Use
  Company Number: US-BIOVITRUM-2019US0892

PATIENT
  Age: 12 Year
  Sex: Male

DRUGS (8)
  1. GENTAMICIN. [Concomitant]
     Active Substance: GENTAMICIN
  2. CODEINE [Concomitant]
     Active Substance: CODEINE
  3. INTERFERON GAMMA NOS [Concomitant]
     Active Substance: INTERFERON GAMMA
  4. AMPICILLIN [Concomitant]
     Active Substance: AMPICILLIN
  5. VANCOMYCIN [Concomitant]
     Active Substance: VANCOMYCIN
  6. MOTRIN [Concomitant]
     Active Substance: IBUPROFEN
  7. DEXTROPROPOXYPHENE [Concomitant]
     Active Substance: PROPOXYPHENE HYDROCHLORIDE
  8. KINERET [Suspect]
     Active Substance: ANAKINRA
     Dosage: DOSE AT ONSET OF EVENT
     Dates: start: 20080730

REACTIONS (1)
  - Subarachnoid haemorrhage [Unknown]

NARRATIVE: CASE EVENT DATE: 20110309
